FAERS Safety Report 8933516 (Version 2)
Quarter: 2013Q1

REPORT INFORMATION
  Report Type: Spontaneous
  Country: US (occurrence: US)
  Receive Date: 20121128
  Receipt Date: 20130228
  Transmission Date: 20140127
  Serious: No
  Sender: FDA-Public Use
  Company Number: US-ABBOTT-12P-163-1004252-00

PATIENT
  Age: 52 Year
  Sex: Male
  Weight: 110.78 kg

DRUGS (4)
  1. ANDROGEL [Suspect]
     Indication: BLOOD TESTOSTERONE DECREASED
     Dosage: PRESCRIBED 12 JUL 2012
     Route: 061
     Dates: start: 20120717, end: 20121018
  2. TRADJENTA [Concomitant]
     Indication: TYPE 2 DIABETES MELLITUS
  3. PRAVACHOL [Concomitant]
     Indication: BLOOD CHOLESTEROL INCREASED
  4. LISINOPRIL HCT [Concomitant]
     Indication: HYPERTENSION
     Dosage: 12.5MG/10MG
     Route: 048

REACTIONS (1)
  - Blood testosterone increased [Not Recovered/Not Resolved]
